FAERS Safety Report 9601738 (Version 1)
Quarter: 2013Q4

REPORT INFORMATION
  Report Type: Spontaneous
  Country: US (occurrence: None)
  Receive Date: 20131004
  Receipt Date: 20131004
  Transmission Date: 20140711
  Serious: No
  Sender: FDA-Public Use
  Company Number: None

PATIENT
  Age: 48 Year
  Sex: Female
  Weight: 45.36 kg

DRUGS (2)
  1. BADGER KIDS SPF 30 SUNSCREEN [Suspect]
     Indication: SUNBURN
     Dates: start: 20130901, end: 20130929
  2. BADGER KIDS SPF 30 SUNSCREEN [Suspect]
     Indication: PROPHYLAXIS
     Dates: start: 20130901, end: 20130929

REACTIONS (6)
  - Skin reaction [None]
  - Dry skin [None]
  - Rash [None]
  - Pruritus [None]
  - Drug hypersensitivity [None]
  - Product quality issue [None]
